FAERS Safety Report 25446065 (Version 2)
Quarter: 2025Q2

REPORT INFORMATION
  Report Type: Spontaneous
  Country: US (occurrence: US)
  Receive Date: 20250617
  Receipt Date: 20250627
  Transmission Date: 20250716
  Serious: Yes (Other)
  Sender: AUTOLUS THERAPEUTICS
  Company Number: US-Autolus Ltd-2178875

PATIENT
  Age: 23 Year
  Sex: Male

DRUGS (1)
  1. AUCATZYL [Suspect]
     Active Substance: OBECABTAGENE AUTOLEUCEL
     Dates: start: 20250414, end: 20250423

REACTIONS (5)
  - Cytokine release syndrome [Recovered/Resolved]
  - Hypernatraemia [Recovered/Resolved]
  - Hypokalaemia [Recovered/Resolved]
  - Febrile neutropenia [Recovered/Resolved]
  - Acute kidney injury [Recovered/Resolved]

NARRATIVE: CASE EVENT DATE: 20250427
